FAERS Safety Report 25595894 (Version 1)
Quarter: 2025Q3

REPORT INFORMATION
  Report Type: Other
  Country: CA (occurrence: CA)
  Receive Date: 20250723
  Receipt Date: 20250723
  Transmission Date: 20251021
  Serious: Yes (Hospitalization)
  Sender: APOTEX
  Company Number: CA-PGRTD-001127573

PATIENT
  Age: 72 Year
  Sex: Female
  Weight: 71.4 kg

DRUGS (2)
  1. RISPERIDONE [Suspect]
     Active Substance: RISPERIDONE
     Indication: Agitation
     Route: 048
  2. RISPERIDONE [Suspect]
     Active Substance: RISPERIDONE
     Indication: Aggression

REACTIONS (3)
  - Neurological symptom [Recovering/Resolving]
  - Psychiatric symptom [Recovering/Resolving]
  - Parkinsonism [Recovering/Resolving]
